FAERS Safety Report 19586348 (Version 1)
Quarter: 2021Q3

REPORT INFORMATION
  Report Type: Spontaneous
  Country: FR (occurrence: FR)
  Receive Date: 20210720
  Receipt Date: 20210720
  Transmission Date: 20211014
  Serious: Yes (Death, Life-Threatening, Hospitalization, Other)
  Sender: FDA-Public Use
  Company Number: FR-INCYTE CORPORATION-2021IN006201

PATIENT

DRUGS (9)
  1. JAKAVI [Suspect]
     Active Substance: RUXOLITINIB
     Indication: MYELOFIBROSIS
     Dosage: 50 MG
     Route: 048
     Dates: start: 20210216, end: 20210520
  2. ALLOPURINOL. [Concomitant]
     Active Substance: ALLOPURINOL
     Indication: HYPERURICAEMIA
     Dosage: 300 MG, QD
     Route: 048
  3. ASPEGIC [Concomitant]
     Indication: ARTERITIS
     Dosage: 100 MG, QD
     Route: 048
     Dates: start: 20210120
  4. AMLOR [Concomitant]
     Active Substance: AMLODIPINE BESYLATE
     Indication: HYPERTENSION
     Dosage: 5 MG, QD
     Route: 065
  5. TRAMADOL. [Concomitant]
     Active Substance: TRAMADOL
     Indication: PAIN PROPHYLAXIS
     Dosage: 1 DF, PRN
     Route: 048
  6. PARACETAMOL [Concomitant]
     Active Substance: ACETAMINOPHEN
     Indication: PAIN PROPHYLAXIS
     Dosage: 1 UNK, PRN
     Route: 048
  7. KAYEXALATE [Concomitant]
     Active Substance: SODIUM POLYSTYRENE SULFONATE
     Indication: PROPHYLAXIS
     Dosage: UNK UNK, QD (1 SPOON)
     Route: 048
  8. COAPROVEL [Concomitant]
     Active Substance: HYDROCHLOROTHIAZIDE\IRBESARTAN
     Indication: HYPERTENSION
     Dosage: UNK
     Route: 048
     Dates: end: 20210520
  9. UROREC [Concomitant]
     Active Substance: SILODOSIN
     Indication: POLLAKIURIA
     Dosage: 4 MG, QD
     Route: 048
     Dates: start: 20210226

REACTIONS (12)
  - Acute kidney injury [Not Recovered/Not Resolved]
  - Haematoma [Unknown]
  - Lung disorder [Unknown]
  - Septic shock [Recovered/Resolved]
  - Pain in extremity [Unknown]
  - Septic shock [Fatal]
  - Oedema peripheral [Unknown]
  - Respiratory distress [Unknown]
  - Pneumocystis jirovecii pneumonia [Not Recovered/Not Resolved]
  - Blood creatinine increased [Unknown]
  - Hypotension [Unknown]
  - Drug ineffective [Unknown]

NARRATIVE: CASE EVENT DATE: 20210507
